FAERS Safety Report 5713154-1 (Version None)
Quarter: 2008Q2

REPORT INFORMATION
  Report Type: 
  Country: None (occurrence: None)
  Receive Date: 20080418
  Receipt Date: 20080402
  Transmission Date: 20081010
  Serious: Yes (Other)
  Sender: FDA-Public Use
  Company Number: 2008VX000859

PATIENT
  Age: 34 Year
  Sex: Female

DRUGS (4)
  1. LIBRAX [Suspect]
     Dosage: ; TID; PO
     Route: 048
  2. LIBRIUM [Suspect]
     Dosage: 10 MG; TID;
  3. FLUPHENAZINE HCL [Suspect]
     Dosage: 5 MG; TID;
  4. PROCHLORPERAZINE MALEATE [Suspect]
     Dosage: 5 MG; TID;

REACTIONS (4)
  - ALCOHOL PROBLEM [None]
  - BILIARY CIRRHOSIS [None]
  - CHOLELITHIASIS [None]
  - HEPATITIS VIRAL [None]
